FAERS Safety Report 8329084-5 (Version None)
Quarter: 2012Q2

REPORT INFORMATION
  Report Type: 
  Country: None (occurrence: None)
  Receive Date: 20120502
  Receipt Date: 20120425
  Transmission Date: 20120825
  Serious: Yes (Hospitalization)
  Sender: FDA-Public Use
  Company Number: US-BAYER-2011-075066

PATIENT
  Age: 46 Year
  Sex: Female

DRUGS (10)
  1. MAXZIDE [Concomitant]
     Indication: HYPERTENSION
     Dosage: UNK
     Dates: start: 20050301
  2. VICODIN [Concomitant]
     Dosage: UNK
     Dates: start: 20050301
  3. LISINOPRIL [Concomitant]
     Indication: HYPERTENSION
     Dosage: 20 MG, UNK
     Dates: start: 20050301
  4. YASMIN [Suspect]
     Dosage: UNK
     Dates: start: 20041001, end: 20050301
  5. ALLEGRA [Concomitant]
     Dosage: UNK
     Dates: start: 20050301
  6. NORVASC [Concomitant]
     Dosage: 10 MG, UNK
     Dates: start: 20050301
  7. PERCOCET [Concomitant]
     Dosage: UNK
     Dates: start: 20050301
  8. CIPROFLOXACIN [Concomitant]
     Dosage: 500 MG, UNK
  9. PROTONIX [Concomitant]
     Indication: GASTROOESOPHAGEAL REFLUX DISEASE
     Dosage: 40 MG, UNK
     Dates: start: 20050301
  10. DOCUSATE [Concomitant]
     Dosage: UNK
     Dates: start: 20050301

REACTIONS (4)
  - DEEP VEIN THROMBOSIS [None]
  - PAIN [None]
  - PULMONARY EMBOLISM [None]
  - INJURY [None]
